FAERS Safety Report 4862365-6 (Version None)
Quarter: 2005Q4

REPORT INFORMATION
  Report Type: 
  Country: None (occurrence: None)
  Receive Date: 20051221
  Receipt Date: 20051209
  Transmission Date: 20060501
  Serious: Yes (Other)
  Sender: FDA-Public Use
  Company Number: CA-BRISTOL-MYERS SQUIBB COMPANY-13217922

PATIENT
  Age: 84 Year
  Sex: Female

DRUGS (15)
  1. TEQUIN [Suspect]
     Route: 048
  2. AMLODIPINE [Concomitant]
     Route: 048
  3. ASPIRIN [Concomitant]
     Route: 048
  4. CALCIUM GLUCONATE [Concomitant]
     Route: 048
  5. CITALOPRAM HYDROBROMIDE [Concomitant]
     Route: 048
  6. ETIDRONATE DISODIUM [Concomitant]
     Route: 048
  7. IPRATROPIUM BROMIDE [Concomitant]
     Route: 055
  8. MORPHINE SULFATE [Concomitant]
     Route: 058
  9. NITROGLYCERIN [Concomitant]
     Route: 062
  10. OMEPRAZOLE [Concomitant]
     Route: 048
  11. POTASSIUM CHLORIDE [Concomitant]
     Route: 048
  12. RISPERIDONE [Concomitant]
     Route: 048
  13. SALBUTAMOL [Concomitant]
     Route: 055
  14. SIMVASTATIN TAB [Concomitant]
     Route: 048
  15. ZOPICLONE [Concomitant]
     Route: 048

REACTIONS (1)
  - HYPERGLYCAEMIA [None]
